FAERS Safety Report 13718158 (Version 1)
Quarter: 2017Q3

REPORT INFORMATION
  Report Type: Spontaneous
  Country: US (occurrence: US)
  Receive Date: 20170705
  Receipt Date: 20170705
  Transmission Date: 20171127
  Serious: Yes (Other)
  Sender: FDA-Public Use
  Company Number: PHHY2017US093229

PATIENT
  Age: 25 Year
  Sex: Female

DRUGS (3)
  1. ACETYLSALICYLIC ACID [Suspect]
     Active Substance: ASPIRIN
     Indication: TAKAYASU^S ARTERITIS
     Dosage: 81 MG, QD
     Route: 065
  2. ETANERCEPT [Suspect]
     Active Substance: ETANERCEPT
     Indication: TAKAYASU^S ARTERITIS
     Dosage: 50 MG, QW
     Route: 058
  3. PREDNISONE. [Suspect]
     Active Substance: PREDNISONE
     Indication: TAKAYASU^S ARTERITIS
     Dosage: 25 MG, BID
     Route: 065

REACTIONS (7)
  - Red blood cell sedimentation rate increased [Unknown]
  - C-reactive protein increased [Unknown]
  - Condition aggravated [Unknown]
  - Disease recurrence [Unknown]
  - Intermittent claudication [Unknown]
  - Night sweats [Unknown]
  - Takayasu^s arteritis [Unknown]
